FAERS Safety Report 12178132 (Version 1)
Quarter: 2016Q1

REPORT INFORMATION
  Report Type: Spontaneous
  Country: CA (occurrence: CA)
  Receive Date: 20160314
  Receipt Date: 20160314
  Transmission Date: 20160526
  Serious: Yes (Death, Other)
  Sender: FDA-Public Use
  Company Number: PHHY2016CA031363

PATIENT
  Age: 20 Month
  Sex: Male

DRUGS (6)
  1. METHOTREXATE [Suspect]
     Active Substance: METHOTREXATE
     Indication: RHABDOID TUMOUR
     Dosage: 8 G/KG, UNK
     Route: 042
  2. ETOPOSIDE. [Suspect]
     Active Substance: ETOPOSIDE
     Indication: RHABDOID TUMOUR
     Dosage: 2.5 MG/KG, UNK
     Route: 065
  3. CISPLATIN. [Suspect]
     Active Substance: CISPLATIN
     Indication: RHABDOID TUMOUR
     Dosage: 3.5 MG/KG, UNK
     Route: 065
  4. GRANULOCYTE COLONY STIMULATING FACTOR [Concomitant]
     Active Substance: GRANULOCYTE COLONY-STIMULATING FACTOR NOS
     Indication: PROPHYLAXIS
     Dosage: 5 UG/KG, UNK
     Route: 065
  5. VINCRISTINE [Suspect]
     Active Substance: VINCRISTINE
     Indication: RHABDOID TUMOUR
     Dosage: 0.05 MG/KG, UNK
     Route: 065
  6. CYCLOPHOSPHAMIDE. [Suspect]
     Active Substance: CYCLOPHOSPHAMIDE
     Indication: RHABDOID TUMOUR
     Dosage: 60 MG/KG, UNK
     Route: 065

REACTIONS (13)
  - Hepatic candidiasis [Recovered/Resolved]
  - Hypotension [Unknown]
  - Hypogammaglobulinaemia [Recovered/Resolved]
  - Rhinorrhoea [Unknown]
  - Diarrhoea [Unknown]
  - Rhabdoid tumour [Fatal]
  - Hepatic necrosis [Recovered/Resolved]
  - Abdominal discomfort [Unknown]
  - Disease recurrence [Fatal]
  - Tachycardia [Unknown]
  - Cystitis haemorrhagic [Recovered/Resolved]
  - Neutropenia [Recovered/Resolved]
  - Pyrexia [Unknown]
